FAERS Safety Report 8584708-2 (Version None)
Quarter: 2012Q3

REPORT INFORMATION
  Report Type: 
  Country: None (occurrence: None)
  Receive Date: 20120810
  Receipt Date: 20120731
  Transmission Date: 20120928
  Serious: Yes (Hospitalization)
  Sender: FDA-Public Use
  Company Number: US-BAYER-2012-078605

PATIENT
  Age: 24 Year
  Sex: Female
  Weight: 124.5 kg

DRUGS (10)
  1. DROSPIRENONE AND ETHINYL ESTRADIOL [Suspect]
  2. YAZ [Suspect]
     Indication: PREMENSTRUAL SYNDROME
  3. ALBUTEROL [Concomitant]
     Route: 045
  4. ZITHROMAX [Concomitant]
  5. CLARITHROMYCIN [Concomitant]
  6. ZOLOFT [Concomitant]
     Dosage: 50 MG, 1 TABLET EVERY DAY;
     Route: 048
     Dates: start: 20110829, end: 20120530
  7. XANAX [Concomitant]
     Dosage: 0.25 MG, PRN
     Route: 048
     Dates: start: 20080827, end: 20120413
  8. ZOLOFT [Concomitant]
     Dosage: 100 MG,1 TABLET EVERY NIGHT HS
     Route: 048
     Dates: start: 20110829, end: 20120530
  9. MEDROL [Concomitant]
  10. PROAIR HFA [Concomitant]

REACTIONS (2)
  - PULMONARY EMBOLISM [None]
  - THROMBOPHLEBITIS SUPERFICIAL [None]
